FAERS Safety Report 7590776-7 (Version None)
Quarter: 2011Q3

REPORT INFORMATION
  Report Type: 
  Country: None (occurrence: None)
  Receive Date: 20110705
  Receipt Date: 20110622
  Transmission Date: 20111222
  Serious: Yes (Hospitalization)
  Sender: FDA-Public Use
  Company Number: PHHY2011DE41742

PATIENT
  Sex: Female
  Weight: 116 kg

DRUGS (7)
  1. ANGIOTENSIN CONVERTING ENZYME BLOCKERS [Concomitant]
  2. BETA BLOCKING AGENTS [Concomitant]
     Dosage: UNK
     Dates: start: 20101217
  3. CALCIUM CHANNEL BLOCKERS [Concomitant]
  4. VASODILATORS USED IN CARDIAC DISEASES [Concomitant]
  5. INSULIN [Concomitant]
     Indication: DIABETES MELLITUS
  6. ALISKIREN [Suspect]
     Indication: HYPERTENSION
     Dosage: 150 MG, QD
     Route: 048
     Dates: start: 20090306, end: 20090404
  7. DIURETICS [Concomitant]

REACTIONS (5)
  - BLOOD PRESSURE INCREASED [None]
  - DYSPNOEA [None]
  - HEART RATE INCREASED [None]
  - HYPERTENSIVE CRISIS [None]
  - GOUTY ARTHRITIS [None]
